FAERS Safety Report 8782357 (Version 3)
Quarter: 2013Q4

REPORT INFORMATION
  Report Type: Report from Study
  Country: JP (occurrence: JP)
  Receive Date: 20120913
  Receipt Date: 20131031
  Transmission Date: 20140711
  Serious: Yes (Hospitalization)
  Sender: FDA-Public Use
  Company Number: JP-009507513-1004USA01476

PATIENT
  Age: 71 Year
  Sex: Female

DRUGS (3)
  1. BONALON [Suspect]
     Indication: OSTEOPOROSIS
     Dosage: 35 MG, QW
     Route: 048
     Dates: start: 20090609, end: 20100406
  2. NEW CALCICHEW D3 [Suspect]
     Indication: OSTEOPOROSIS
     Dosage: 2 DF, QD
     Route: 048
     Dates: start: 20090513, end: 20100411
  3. PLACEBO (UNSPECIFIED) [Suspect]
     Indication: OSTEOPOROSIS
     Dosage: 100 ML, QM
     Route: 042
     Dates: start: 20090608, end: 20100315

REACTIONS (1)
  - Retinal detachment [Unknown]
